FAERS Safety Report 9665054 (Version 4)
Quarter: 2013Q4

REPORT INFORMATION
  Report Type: Spontaneous
  Country: US (occurrence: US)
  Receive Date: 20131101
  Receipt Date: 20131126
  Transmission Date: 20140711
  Serious: Yes (Hospitalization, Other)
  Sender: FDA-Public Use
  Company Number: US-GILEAD-2013-0086836

PATIENT
  Age: 57 Year
  Sex: Male

DRUGS (3)
  1. LETAIRIS [Suspect]
     Indication: PULMONARY ARTERIAL HYPERTENSION
     Dosage: 10 MG, QD
     Route: 048
     Dates: start: 20130913
  2. ADCIRCA [Concomitant]
  3. TYVASO [Concomitant]

REACTIONS (8)
  - Mental status changes [Unknown]
  - Gas poisoning [Unknown]
  - Spinal fracture [Unknown]
  - Influenza [Not Recovered/Not Resolved]
  - Disorientation [Unknown]
  - Muscular weakness [Unknown]
  - Fall [Unknown]
  - Swelling [Unknown]
